FAERS Safety Report 8961657 (Version 1)
Quarter: 2012Q4

REPORT INFORMATION
  Report Type: Report from Study
  Country: CA (occurrence: CA)
  Receive Date: 20121213
  Receipt Date: 20121213
  Transmission Date: 20130627
  Serious: Yes (Hospitalization)
  Sender: FDA-Public Use
  Company Number: CA-JNJFOC-20121203302

PATIENT
  Sex: Female

DRUGS (6)
  1. REMICADE [Suspect]
     Indication: CROHN^S DISEASE
     Route: 042
  2. REMICADE [Suspect]
     Indication: CROHN^S DISEASE
     Route: 042
     Dates: start: 201009
  3. HUMIRA [Suspect]
     Indication: CROHN^S DISEASE
     Route: 065
  4. METHOTREXATE [Suspect]
     Indication: CROHN^S DISEASE
     Route: 065
  5. IMURAN [Concomitant]
     Route: 065
  6. PANTOLOC [Concomitant]
     Route: 065

REACTIONS (2)
  - Crohn^s disease [Recovered/Resolved]
  - Weight decreased [Recovering/Resolving]
